FAERS Safety Report 10481399 (Version 1)
Quarter: 2014Q3

REPORT INFORMATION
  Report Type: Spontaneous
  Country: US (occurrence: None)
  Receive Date: 20140908
  Receipt Date: 20140908
  Transmission Date: 20150326
  Serious: Yes (Other)
  Sender: FDA-Public Use
  Company Number: 383139

PATIENT
  Age: 79 Year
  Sex: Female
  Weight: 79.4 kg

DRUGS (7)
  1. VICTOZA [Suspect]
     Active Substance: LIRAGLUTIDE
     Indication: TYPE 2 DIABETES MELLITUS
     Route: 058
  2. GLIPIZIDE XL(GLIPIZIDE) [Concomitant]
  3. METFORMIN [Concomitant]
     Active Substance: METFORMIN HYDROCHLORIDE
  4. JANUVIA(SITAGLIPTIN PHOSPHATE) [Concomitant]
  5. LEVOTHYROXINE(LEVOTHYROXINE) [Concomitant]
  6. UNIRETIC/00206601)/(AMILORIDE HYDROCHLORIDE, HYDROCHLOROTHIAIZE) [Concomitant]
  7. VITAMIN D /00107901/(ERGOCALCIFEROL) [Concomitant]

REACTIONS (1)
  - Pancreatitis [None]

NARRATIVE: CASE EVENT DATE: 201306
